FAERS Safety Report 16001422 (Version 3)
Quarter: 2020Q3

REPORT INFORMATION
  Report Type: Report from Study
  Country: DE (occurrence: DE)
  Receive Date: 20190225
  Receipt Date: 20190415
  Transmission Date: 20201104
  Serious: Yes (Life-Threatening)
  Sender: FDA-Public Use
  Company Number: DE-JNJFOC-20190234478

PATIENT
  Age: 4 Decade
  Sex: Male

DRUGS (12)
  1. LAXOFALK [Concomitant]
     Indication: CONSTIPATION PROPHYLAXIS
     Route: 065
     Dates: start: 20181220
  2. METOPROLOL. [Concomitant]
     Active Substance: METOPROLOL
     Indication: HYPERTONIA
     Route: 065
     Dates: start: 20181220
  3. TRABECTEDIN [Suspect]
     Active Substance: TRABECTEDIN
     Route: 042
  4. OLANZAPIN [Concomitant]
     Active Substance: OLANZAPINE
     Indication: ILL-DEFINED DISORDER
     Route: 065
     Dates: start: 20181220
  5. MIRTAZAPIN [Concomitant]
     Active Substance: MIRTAZAPINE
     Indication: ILL-DEFINED DISORDER
     Dosage: 30 UNSPECIFIED UNITS
     Route: 065
     Dates: start: 20190128
  6. ETORICOXIB. [Concomitant]
     Active Substance: ETORICOXIB
     Indication: ILL-DEFINED DISORDER
     Dosage: 90 UNSPECIFIED UNITS
     Route: 065
     Dates: start: 20190128
  7. TRABECTEDIN [Suspect]
     Active Substance: TRABECTEDIN
     Indication: SARCOMA METASTATIC
     Dosage: CYCLE 1 TO 2
     Route: 042
     Dates: start: 20190114, end: 20190215
  8. PANTOZOL [Concomitant]
     Active Substance: PANTOPRAZOLE SODIUM
     Indication: GASTROINTESTINAL DISORDER THERAPY
     Route: 065
     Dates: start: 20181220
  9. ZOPICLON [Concomitant]
     Active Substance: ZOPICLONE
     Indication: SLEEP DISORDER
     Route: 065
     Dates: start: 20190128
  10. TRABECTEDIN [Suspect]
     Active Substance: TRABECTEDIN
     Route: 042
  11. CLEXANE [Concomitant]
     Active Substance: ENOXAPARIN SODIUM
     Indication: THROMBOSIS PROPHYLAXIS
     Route: 065
     Dates: start: 20190128
  12. TAVOR [Concomitant]
     Indication: ILL-DEFINED DISORDER
     Route: 065
     Dates: start: 20190128

REACTIONS (1)
  - Acute kidney injury [Recovered/Resolved with Sequelae]

NARRATIVE: CASE EVENT DATE: 20190219
